FAERS Safety Report 18136179 (Version 1)
Quarter: 2020Q3

REPORT INFORMATION
  Report Type: Spontaneous
  Country: US (occurrence: US)
  Receive Date: 20200811
  Receipt Date: 20200811
  Transmission Date: 20201103
  Serious: No
  Sender: FDA-Public Use
  Company Number: US-ANAZAOHEALTH CORPORATION-2088470

PATIENT
  Age: 50 Year
  Sex: Female
  Weight: 84.55 kg

DRUGS (3)
  1. TESTOSTERONE 100 MG PELLET [Suspect]
     Active Substance: TESTOSTERONE
     Indication: HORMONE REPLACEMENT THERAPY
     Route: 058
     Dates: start: 20200421
  2. TESTOSTERONE. [Concomitant]
     Active Substance: TESTOSTERONE
     Route: 058
     Dates: start: 20200421
  3. ESTRADIOL. [Concomitant]
     Active Substance: ESTRADIOL
     Route: 058

REACTIONS (2)
  - Deep vein thrombosis [Unknown]
  - Pulmonary embolism [Unknown]

NARRATIVE: CASE EVENT DATE: 20200617
